FAERS Safety Report 10581071 (Version 1)
Quarter: 2014Q4

REPORT INFORMATION
  Report Type: Spontaneous
  Country: US (occurrence: None)
  Receive Date: 20141112
  Receipt Date: 20141112
  Transmission Date: 20150529
  Serious: No
  Sender: FDA-Public Use
  Company Number: None

PATIENT
  Age: 67 Year
  Sex: Female
  Weight: 58.06 kg

DRUGS (14)
  1. ZANTAC [Concomitant]
     Active Substance: RANITIDINE HYDROCHLORIDE
  2. AMLODIPINE BESYLATE. [Suspect]
     Active Substance: AMLODIPINE BESYLATE
     Indication: PALPITATIONS
     Route: 048
     Dates: start: 20140914, end: 20141019
  3. VALIUM [Concomitant]
     Active Substance: DIAZEPAM
  4. ASPIRIN. [Concomitant]
     Active Substance: ASPIRIN
  5. OCUVITE [Concomitant]
     Active Substance: VITAMINS
  6. SYNTHROID [Concomitant]
     Active Substance: LEVOTHYROXINE SODIUM
  7. MULTIVITAMIN [Concomitant]
     Active Substance: VITAMINS
  8. AMLODIPINE BESYLATE. [Suspect]
     Active Substance: AMLODIPINE BESYLATE
     Indication: HYPERTENSION
     Route: 048
     Dates: start: 20140914, end: 20141019
  9. TIGAN [Suspect]
     Active Substance: TRIMETHOBENZAMIDE HYDROCHLORIDE
  10. METROPOLOL [Concomitant]
     Active Substance: METOPROLOL
  11. FIORICET [Concomitant]
     Active Substance: ACETAMINOPHEN\BUTALBITAL\CAFFEINE
  12. MECLIZINE [Concomitant]
     Active Substance: MECLIZINE\MECLIZINE HYDROCHLORIDE
  13. ESTRACE [Concomitant]
     Active Substance: ESTRADIOL
  14. CALCIUM [Concomitant]
     Active Substance: CALCIUM

REACTIONS (8)
  - Dyspnoea [None]
  - Dizziness [None]
  - Chest discomfort [None]
  - Headache [None]
  - Hyperventilation [None]
  - Respiratory arrest [None]
  - Fatigue [None]
  - Drug ineffective [None]

NARRATIVE: CASE EVENT DATE: 20141017
